FAERS Safety Report 5036531-3 (Version None)
Quarter: 2006Q2

REPORT INFORMATION
  Report Type: 
  Country: None (occurrence: None)
  Receive Date: 20060626
  Receipt Date: 20060609
  Transmission Date: 20061013
  Serious: Yes (Hospitalization)
  Sender: FDA-Public Use
  Company Number: DSA_28333_2006

PATIENT
  Age: 29 Year
  Sex: Female

DRUGS (3)
  1. TAVOR [Suspect]
     Dosage: 2 MG ONCE PO
     Route: 048
     Dates: start: 20060510, end: 20060510
  2. TRAMADOL HCL [Suspect]
     Dosage: 200 MG ONCE PO
     Route: 048
     Dates: start: 20060510, end: 20060510
  3. BOTTLE OF SPARKLING WINE [Suspect]
     Dosage: 1 BOTTLE ONCE PO
     Route: 048
     Dates: start: 20060510, end: 20060510

REACTIONS (4)
  - FATIGUE [None]
  - FEELING DRUNK [None]
  - MULTIPLE DRUG OVERDOSE [None]
  - TACHYCARDIA [None]
